FAERS Safety Report 6965250-9 (Version None)
Quarter: 2010Q3

REPORT INFORMATION
  Report Type: 
  Country: None (occurrence: None)
  Receive Date: 20100903
  Receipt Date: 20100830
  Transmission Date: 20110219
  Serious: Yes (Death, Other)
  Sender: FDA-Public Use
  Company Number: PHHY2010NL57241

PATIENT
  Sex: Male

DRUGS (2)
  1. ZOMETA [Suspect]
     Dosage: 4 MG/5 ML
     Route: 042
  2. ZOMETA [Suspect]
     Dosage: 4 MG/5 ML
     Route: 042
     Dates: start: 20100817

REACTIONS (3)
  - CARDIAC DISORDER [None]
  - DEATH [None]
  - GENERAL PHYSICAL HEALTH DETERIORATION [None]
